FAERS Safety Report 17105959 (Version 1)
Quarter: 2019Q4

REPORT INFORMATION
  Report Type: Spontaneous
  Country: VN (occurrence: VN)
  Receive Date: 20191203
  Receipt Date: 20191203
  Transmission Date: 20200122
  Serious: Yes (Other)
  Sender: FDA-Public Use
  Company Number: NVSC2019VN055029

PATIENT

DRUGS (2)
  1. GEMCITABINE. [Suspect]
     Active Substance: GEMCITABINE
     Indication: ADENOCARCINOMA PANCREAS
     Dosage: 1000 MG/M2 (SKIN AREA WITHIN 100 MIN.DAY 1 OF 14 DAYS CYCLE)
     Route: 041
  2. OXALIPLATIN. [Suspect]
     Active Substance: OXALIPLATIN
     Indication: ADENOCARCINOMA PANCREAS
     Dosage: 100 MG/M2 (SKIN AREA DAY2 OF 14 DAYS CYCLE)
     Route: 041

REACTIONS (3)
  - Toxicity to various agents [Unknown]
  - Product use in unapproved indication [Unknown]
  - Platelet count decreased [Unknown]
